FAERS Safety Report 5809340-2 (Version None)
Quarter: 2008Q3

REPORT INFORMATION
  Report Type: 
  Country: None (occurrence: None)
  Receive Date: 20080714
  Receipt Date: 20080703
  Transmission Date: 20090109
  Serious: Yes (Other)
  Sender: FDA-Public Use
  Company Number: PHHY2008BR13137

PATIENT
  Sex: Female
  Weight: 73 kg

DRUGS (1)
  1. PARLODEL [Suspect]
     Indication: BLOOD PROLACTIN INCREASED
     Dosage: 2.5 MG, QD
     Route: 048
     Dates: start: 20080617

REACTIONS (14)
  - CRYING [None]
  - DEPRESSED MOOD [None]
  - ERYTHEMA [None]
  - EYE PAIN [None]
  - FATIGUE [None]
  - FEELING ABNORMAL [None]
  - FEELING HOT [None]
  - HEADACHE [None]
  - INSOMNIA [None]
  - PAIN IN EXTREMITY [None]
  - PAIN IN JAW [None]
  - PERIPHERAL COLDNESS [None]
  - SOMNOLENCE [None]
  - VISION BLURRED [None]
